FAERS Safety Report 17030324 (Version 1)
Quarter: 2019Q4

REPORT INFORMATION
  Report Type: Spontaneous
  Country: US (occurrence: US)
  Receive Date: 20191010
  Receipt Date: 20191010
  Transmission Date: 20200122
  Serious: Yes (Hospitalization)
  Sender: FDA-Public Use
  Company Number: None

PATIENT
  Sex: Female
  Weight: 78.8 kg

DRUGS (9)
  1. CARBOPLATIN (241240) [Suspect]
     Active Substance: CARBOPLATIN
     Dates: end: 20190927
  2. IBUPROFEN. [Concomitant]
     Active Substance: IBUPROFEN
  3. DIPHENHYDRAMINIE HCL [Concomitant]
  4. DEXAMTHASONE [Concomitant]
     Active Substance: DEXAMETHASONE
  5. FLUTICASONE NASAL SPRAY [Concomitant]
     Active Substance: FLUTICASONE
  6. GRANISETRON [Concomitant]
     Active Substance: GRANISETRON
  7. PACLITAXEL. [Concomitant]
     Active Substance: PACLITAXEL
     Dates: end: 20190927
  8. FLUOXETINE [Concomitant]
     Active Substance: FLUOXETINE HYDROCHLORIDE
  9. LEVOTHYROXINE. [Concomitant]
     Active Substance: LEVOTHYROXINE

REACTIONS (2)
  - Atrial fibrillation [None]
  - Sinus tachycardia [None]

NARRATIVE: CASE EVENT DATE: 20190928
